FAERS Safety Report 19182892 (Version 1)
Quarter: 2021Q2

REPORT INFORMATION
  Report Type: Spontaneous
  Country: ES (occurrence: ES)
  Receive Date: 20210426
  Receipt Date: 20210426
  Transmission Date: 20210717
  Serious: Yes (Other)
  Sender: FDA-Public Use
  Company Number: ES-ROCHE-2812035

PATIENT
  Age: 45 Year
  Sex: Male

DRUGS (3)
  1. VEMURAFENIB. [Suspect]
     Active Substance: VEMURAFENIB
     Dosage: ON 30/MAY/2019, SHE RECEIVED THE MOST RECENT DOSE OF VEMURAFENIB.
     Route: 048
     Dates: start: 20190530
  2. VEMURAFENIB. [Suspect]
     Active Substance: VEMURAFENIB
     Indication: ERDHEIM-CHESTER DISEASE
     Route: 048
     Dates: start: 20190405
  3. VEMURAFENIB. [Suspect]
     Active Substance: VEMURAFENIB
     Route: 048
     Dates: start: 20190420

REACTIONS (3)
  - Rash erythematous [Recovered/Resolved]
  - Hidradenitis [Recovering/Resolving]
  - Hypertransaminasaemia [Recovered/Resolved]

NARRATIVE: CASE EVENT DATE: 20190420
